FAERS Safety Report 18344467 (Version 1)
Quarter: 2020Q4

REPORT INFORMATION
  Report Type: Spontaneous
  Country: GB (occurrence: GB)
  Receive Date: 20201005
  Receipt Date: 20201005
  Transmission Date: 20210114
  Serious: Yes (Other)
  Sender: FDA-Public Use
  Company Number: GB-MYLANLABS-2020M1083086

PATIENT
  Age: 34 Year
  Sex: Female
  Weight: 61 kg

DRUGS (4)
  1. SALBUTAMOL [Concomitant]
     Active Substance: ALBUTEROL
     Dosage: ONE TO TWO PUFFS TO BE INHALED AS DIRECTED (A M...
     Route: 055
     Dates: start: 20200611
  2. FOSTAIR [Concomitant]
     Active Substance: BECLOMETHASONE\FORMOTEROL
     Dosage: STOP THE C...
     Route: 055
     Dates: start: 20200630, end: 20200730
  3. CLENIL MODULITE [Concomitant]
     Active Substance: BECLOMETHASONE DIPROPIONATE
     Dosage: 4 DOSAGE FORM, QD
     Route: 055
     Dates: start: 20200611, end: 20200731
  4. MONTELUKAST [Suspect]
     Active Substance: MONTELUKAST SODIUM
     Indication: ASTHMA
     Dosage: AT NIGHT
     Dates: start: 20200701

REACTIONS (2)
  - Nightmare [Recovering/Resolving]
  - Depressed mood [Unknown]

NARRATIVE: CASE EVENT DATE: 20200828
